FAERS Safety Report 6357253-2 (Version None)
Quarter: 2009Q3

REPORT INFORMATION
  Report Type: 
  Country: None (occurrence: None)
  Receive Date: 20090916
  Receipt Date: 20090826
  Transmission Date: 20100115
  Serious: Yes (Other)
  Sender: FDA-Public Use
  Company Number: PHHY2009JP14828

PATIENT
  Sex: Male

DRUGS (7)
  1. AMN107 AMN+CAP [Suspect]
     Indication: CHRONIC MYELOID LEUKAEMIA
     Dosage: 800 MG
     Route: 048
     Dates: start: 20090328
  2. MEVALOTIN [Concomitant]
     Dosage: 10 MG
     Route: 048
     Dates: start: 20090328
  3. VASOLAN [Concomitant]
     Dosage: 120 MG
     Route: 048
     Dates: start: 20090328
  4. THEO-DUR [Concomitant]
     Dosage: 300 MG
     Route: 048
     Dates: start: 20090328
  5. METHYCOBAL [Concomitant]
     Dosage: 1500 UG
     Route: 048
     Dates: start: 20090328
  6. FERRUM [Concomitant]
     Dosage: 305 MG
     Route: 048
     Dates: start: 20090328
  7. ALVESCO [Concomitant]
     Dosage: 400 UG
     Route: 048
     Dates: start: 20090428

REACTIONS (2)
  - ELECTROCARDIOGRAM QT PROLONGED [None]
  - PYREXIA [None]
